FAERS Safety Report 18795859 (Version 2)
Quarter: 2021Q2

REPORT INFORMATION
  Report Type: Spontaneous
  Country: US (occurrence: US)
  Receive Date: 20210127
  Receipt Date: 20210514
  Transmission Date: 20210717
  Serious: Yes (Other)
  Sender: FDA-Public Use
  Company Number: US-GLAXOSMITHKLINE-US2021GSK019461

PATIENT
  Sex: Female

DRUGS (2)
  1. RANITIDINE. [Suspect]
     Active Substance: RANITIDINE
     Indication: ASTHMA
     Dosage: 150 MG, QD
     Route: 065
     Dates: start: 201801, end: 201905
  2. RANITIDINE. [Suspect]
     Active Substance: RANITIDINE
     Indication: ASTHMA
     Dosage: 150 MG, QD
     Route: 065
     Dates: start: 201801, end: 201905

REACTIONS (1)
  - Renal cancer [Unknown]
